FAERS Safety Report 8020436-X (Version None)
Quarter: 2012Q1

REPORT INFORMATION
  Report Type: 
  Country: None (occurrence: None)
  Receive Date: 20120103
  Receipt Date: 20111229
  Transmission Date: 20120608
  Serious: Yes (Death)
  Sender: FDA-Public Use
  Company Number: US-ABBOTT-11P-163-0887466-00

PATIENT
  Age: 50 Year
  Sex: Female

DRUGS (4)
  1. COCAINE [Suspect]
     Indication: PRODUCT USED FOR UNKNOWN INDICATION
     Dosage: INGESTION AND INHALATION
     Route: 055
  2. BETA BLOCKER [Suspect]
     Indication: PRODUCT USED FOR UNKNOWN INDICATION
     Dosage: INGESTION AND INHALATION
     Route: 055
  3. FENOFIBRATE [Suspect]
     Indication: PRODUCT USED FOR UNKNOWN INDICATION
     Dosage: INGESTION AND INHALATION
     Route: 055
  4. BUPROPION HCL [Suspect]
     Indication: PRODUCT USED FOR UNKNOWN INDICATION
     Dosage: INGESTION AND INHALATION
     Route: 055

REACTIONS (1)
  - COMPLETED SUICIDE [None]
